FAERS Safety Report 14738132 (Version 1)
Quarter: 2018Q2

REPORT INFORMATION
  Report Type: Spontaneous
  Country: HR (occurrence: HR)
  Receive Date: 20180409
  Receipt Date: 20180409
  Transmission Date: 20180711
  Serious: Yes (Death, Other)
  Sender: FDA-Public Use
  Company Number: HR-BAUSCH-BL-2018-008978

PATIENT
  Age: 49 Year
  Sex: Female

DRUGS (3)
  1. DEXAMETHASONE. [Suspect]
     Active Substance: DEXAMETHASONE
     Indication: MANTLE CELL LYMPHOMA
     Route: 065
     Dates: start: 201707
  2. IBRUTINIB [Suspect]
     Active Substance: IBRUTINIB
     Indication: MANTLE CELL LYMPHOMA
     Route: 048
     Dates: start: 201612, end: 201707
  3. BORTEZOMIB [Suspect]
     Active Substance: BORTEZOMIB
     Indication: MANTLE CELL LYMPHOMA
     Route: 065
     Dates: start: 201707

REACTIONS (4)
  - Thrombocytopenia [Fatal]
  - Neutropenia [Fatal]
  - Mantle cell lymphoma [Fatal]
  - Septic shock [Fatal]

NARRATIVE: CASE EVENT DATE: 201706
